FAERS Safety Report 5944865-0 (Version None)
Quarter: 2008Q4

REPORT INFORMATION
  Report Type: 
  Country: None (occurrence: None)
  Receive Date: 20081107
  Receipt Date: 20081104
  Transmission Date: 20090506
  Serious: Yes (Hospitalization)
  Sender: FDA-Public Use
  Company Number: FR-EISAI MEDICAL RESEARCH-E2090-00582-SPO-FR

PATIENT
  Sex: Male

DRUGS (1)
  1. ZONEGRAN [Suspect]
     Indication: EPILEPSY
     Dosage: 25 MG TO 100 MG UP TITRATION
     Route: 048
     Dates: start: 20080101, end: 20080101

REACTIONS (4)
  - IMPAIRED GASTRIC EMPTYING [None]
  - NAUSEA [None]
  - STATUS EPILEPTICUS [None]
  - VOMITING [None]
